FAERS Safety Report 8564160-3 (Version None)
Quarter: 2012Q3

REPORT INFORMATION
  Report Type: 
  Country: None (occurrence: None)
  Receive Date: 20120803
  Receipt Date: 20120724
  Transmission Date: 20120928
  Serious: Yes (Other)
  Sender: FDA-Public Use
  Company Number: CA-JNJFOC-20120714439

PATIENT
  Sex: Male
  Weight: 87 kg

DRUGS (1)
  1. REMICADE [Suspect]
     Indication: CROHN'S DISEASE
     Route: 042
     Dates: start: 20110324

REACTIONS (6)
  - CHILLS [None]
  - PYREXIA [None]
  - TESTICULAR MASS [None]
  - SWELLING [None]
  - CROHN'S DISEASE [None]
  - PAIN [None]
